FAERS Safety Report 16235288 (Version 9)
Quarter: 2020Q3

REPORT INFORMATION
  Report Type: Report from Study
  Country: US (occurrence: US)
  Receive Date: 20190424
  Receipt Date: 20200819
  Transmission Date: 20201102
  Serious: Yes (Hospitalization)
  Sender: FDA-Public Use
  Company Number: US-ACTELION-A-NJ2018-170868

PATIENT
  Age: 48 Year
  Sex: Male
  Weight: 92.97 kg

DRUGS (7)
  1. OPSUMIT [Suspect]
     Active Substance: MACITENTAN
     Dosage: 10 MG, QD
     Route: 048
  2. REMODULIN [Suspect]
     Active Substance: TREPROSTINIL
     Indication: PRODUCT USED FOR UNKNOWN INDICATION
     Route: 065
  3. ELIQUIS [Concomitant]
     Active Substance: APIXABAN
  4. OPSUMIT [Suspect]
     Active Substance: MACITENTAN
     Indication: PULMONARY HYPERTENSION
     Dosage: 10 MG, QD
     Route: 048
  5. ADCIRCA [Concomitant]
     Active Substance: TADALAFIL
  6. DILTIAZEM. [Concomitant]
     Active Substance: DILTIAZEM
  7. TYVASO [Concomitant]
     Active Substance: TREPROSTINIL

REACTIONS (21)
  - Pyrexia [Unknown]
  - Catheter site erythema [Unknown]
  - Complication associated with device [Unknown]
  - Cardiac failure [Unknown]
  - Fluid retention [Unknown]
  - Therapy change [Unknown]
  - Disease progression [Unknown]
  - Cardiac disorder [Unknown]
  - Catheter management [Recovered/Resolved]
  - Application site pruritus [Unknown]
  - Oxygen saturation decreased [Unknown]
  - Vascular device infection [Unknown]
  - Productive cough [Unknown]
  - Application site irritation [Unknown]
  - Headache [Recovered/Resolved]
  - Cough [Recovered/Resolved]
  - Catheter site pain [Unknown]
  - Atrial fibrillation [Unknown]
  - Flushing [Unknown]
  - Catheter site rash [Unknown]
  - Dyspnoea [Unknown]

NARRATIVE: CASE EVENT DATE: 20180409
